FAERS Safety Report 12077735 (Version 3)
Quarter: 2016Q1

REPORT INFORMATION
  Report Type: Report from Study
  Country: NL (occurrence: NL)
  Receive Date: 20160215
  Receipt Date: 20160301
  Transmission Date: 20160526
  Serious: Yes (Death, Other)
  Sender: FDA-Public Use
  Company Number: NL-GLAXOSMITHKLINE-NL2016GSK019786

PATIENT
  Age: 61 Year
  Sex: Male
  Weight: 90 kg

DRUGS (5)
  1. VANCOMYCINE [Concomitant]
     Active Substance: VANCOMYCIN
  2. ZANAMIVIR [Suspect]
     Active Substance: ZANAMIVIR
  3. NORADRENALIN [Concomitant]
     Active Substance: NOREPINEPHRINE\NOREPINEPHRINE BITARTRATE
  4. MILRINONE [Concomitant]
     Active Substance: MILRINONE
  5. PREDNISON [Concomitant]
     Active Substance: PREDNISONE

REACTIONS (2)
  - Respiratory failure [Fatal]
  - Cardiac failure [Fatal]

NARRATIVE: CASE EVENT DATE: 20160206
